FAERS Safety Report 10235524 (Version 2)
Quarter: 2014Q2

REPORT INFORMATION
  Report Type: Spontaneous
  Country: US (occurrence: US)
  Receive Date: 20140613
  Receipt Date: 20140613
  Transmission Date: 20141212
  Serious: No
  Sender: FDA-Public Use
  Company Number: US-ASTRAZENECA-2011SE03990

PATIENT
  Age: 58 Year
  Sex: Female

DRUGS (2)
  1. NEXIUM [Suspect]
     Route: 048
  2. TOPROL XL [Suspect]
     Route: 048

REACTIONS (7)
  - Hot flush [Unknown]
  - Pyrexia [Unknown]
  - Tremor [Unknown]
  - Condition aggravated [Unknown]
  - Palpitations [Unknown]
  - Vomiting [Unknown]
  - Drug dose omission [Unknown]
